FAERS Safety Report 5075408-4 (Version None)
Quarter: 2006Q3

REPORT INFORMATION
  Report Type: 
  Country: None (occurrence: None)
  Receive Date: 20060807
  Receipt Date: 20060807
  Transmission Date: 20061208
  Serious: Yes (Death)
  Sender: FDA-Public Use
  Company Number: None

PATIENT
  Age: 57 Year
  Sex: Male

DRUGS (2)
  1. FLUDARA [Suspect]
     Indication: B-CELL LYMPHOMA
     Dosage: IV
     Route: 042
     Dates: start: 20020101
  2. FLUDARA [Suspect]
     Indication: NON-HODGKIN'S LYMPHOMA
     Dosage: IV
     Route: 042
     Dates: start: 20020101

REACTIONS (4)
  - IMMUNE SYSTEM DISORDER [None]
  - PROGRESSIVE MULTIFOCAL LEUKOENCEPHALOPATHY [None]
  - SINUSITIS [None]
  - VIRAL INFECTION [None]
